FAERS Safety Report 10234794 (Version 1)
Quarter: 2014Q1

REPORT INFORMATION
  Report Type: Spontaneous
  Country: US (occurrence: None)
  Receive Date: 20140306
  Receipt Date: 20140306
  Transmission Date: 20141002
  Serious: Yes (Hospitalization, Other)
  Sender: FDA-Public Use
  Company Number: 163-21880-13050532

PATIENT
  Age: 70 Year
  Sex: Male
  Weight: 77.9 kg

DRUGS (23)
  1. REVLIMID (LENALIDOMIDE) (25 MILLIGRAM, CAPSULES) [Suspect]
     Indication: CHRONIC LYMPHOCYTIC LEUKAEMIA
     Route: 048
     Dates: start: 201210
  2. FLUDARABINE (UNKNOWN) [Suspect]
     Indication: PRODUCT USED FOR UNKNOWN INDICATION
     Dates: start: 201303
  3. MITOXANTRONE [Suspect]
     Indication: PRODUCT USED FOR UNKNOWN INDICATION
     Dates: start: 201303
  4. DEXAMETHASONE (UNKNOWN) [Suspect]
     Indication: PRODUCT USED FOR UNKNOWN INDICATION
     Route: 048
     Dates: start: 201303
  5. LORAZEPAM (UNKNOWN) [Concomitant]
  6. LIPITOR (ATORVASTATIN) (UNKNOWN) [Concomitant]
  7. ACYCLOVIR (ACICLOVIR) (UNKNOWN) [Concomitant]
  8. BACLOFEN (UNKNOWN) [Concomitant]
  9. BACTRIM (UNKNOWN) [Concomitant]
  10. NORCO (VICODIN) (TABLETS) [Concomitant]
  11. EMLA (EMLA) (CREAM) [Concomitant]
  12. COMPAZINE (PROCHLORPERAZINE EDISYLATE) (TABLETS) [Concomitant]
  13. CIPRO (CIPROFLOXACIN) (TABLETS) [Concomitant]
  14. RESTORIL (TEMAZEPAM) (CAPSULES) [Concomitant]
  15. REGLAN (METOCLOPRAMIDE) (TABLETS) [Concomitant]
  16. ZOFRAN (ONDANSETRON HYDROCHLORIDE) (TABLETS) [Concomitant]
  17. PREDNISONE (TABLETS) [Concomitant]
  18. METFORMIN (TABLETS) [Concomitant]
  19. PEPCID (FAMOTIDINE) (TABLETS) [Concomitant]
  20. NITROQUICK (GLYCERYL TRINITRATE) (TABLETS) [Concomitant]
  21. PLAVIX (CLOPIDOGREL SULFATE) (TABLETS) [Concomitant]
  22. ZOCOR (SIMVASTATIN) (TABLETS) [Concomitant]
  23. ASPIRIN (ACETYLSALICYLIC ACID) (ENTERIC-COATED TABLET) [Concomitant]

REACTIONS (9)
  - Septic shock [None]
  - Staphylococcal sepsis [None]
  - Pancytopenia [None]
  - Skin infection [None]
  - Chronic lymphocytic leukaemia [None]
  - Disease progression [None]
  - Neuralgia [None]
  - Oedema peripheral [None]
  - Drug ineffective [None]
